FAERS Safety Report 4392800-1 (Version None)
Quarter: 2004Q3

REPORT INFORMATION
  Report Type: 
  Country: None (occurrence: None)
  Receive Date: 20040702
  Receipt Date: 20040316
  Transmission Date: 20050211
  Serious: Yes (Other)
  Sender: FDA-Public Use
  Company Number: 2004UW05018

PATIENT
  Age: 68 Year
  Sex: Female

DRUGS (4)
  1. CRESTOR [Suspect]
     Dosage: 10 MG QD PO
     Route: 048
     Dates: start: 20040306
  2. SYNTHROID [Concomitant]
  3. NORVASC [Concomitant]
  4. LOPRESSOR [Concomitant]

REACTIONS (1)
  - SKIN DISCOLOURATION [None]
